FAERS Safety Report 10419318 (Version 1)
Quarter: 2014Q3

REPORT INFORMATION
  Report Type: Spontaneous
  Country: DE (occurrence: DE)
  Receive Date: 20140829
  Receipt Date: 20140829
  Transmission Date: 20150326
  Serious: Yes (Congenital Anomaly, Other)
  Sender: FDA-Public Use
  Company Number: GXKR2014DE003321

PATIENT

DRUGS (7)
  1. FOLSAEURE [Concomitant]
     Active Substance: FOLIC ACID
     Indication: PROPHYLAXIS OF NEURAL TUBE DEFECT
     Dosage: 0.4 [MG/D ]
     Route: 064
     Dates: start: 20130117, end: 20130214
  2. FAMPYRA [Suspect]
     Active Substance: DALFAMPRIDINE
     Indication: MULTIPLE SCLEROSIS
     Dosage: 10 [MG/D ]
     Route: 064
     Dates: start: 20121118, end: 20121210
  3. ASPIRIN. [Concomitant]
     Active Substance: ASPIRIN
     Indication: THROMBOSIS PROPHYLAXIS
     Dosage: 100 [MG/D ]
     Route: 064
     Dates: start: 20130412, end: 20130628
  4. CLEXANE [Concomitant]
     Active Substance: ENOXAPARIN SODIUM
     Indication: THROMBOSIS
     Dosage: 40 [MG/D ]
     Route: 064
     Dates: start: 20121118, end: 20130628
  5. TYSABRI [Suspect]
     Active Substance: NATALIZUMAB
     Indication: MULTIPLE SCLEROSIS
     Route: 064
     Dates: start: 20121118, end: 20121206
  6. GABAPENTIN. [Suspect]
     Active Substance: GABAPENTIN
     Indication: MULTIPLE SCLEROSIS
     Dosage: 3200 [MG/D (TO 1200) ]/ UNTIL GW 3+1: 3200MG/D; AGAIN FROM GW 14+2:1200MG/D
     Route: 064
     Dates: start: 20121118, end: 20130628
  7. REMERGIL [Suspect]
     Active Substance: MIRTAZAPINE
     Indication: DEPRESSION
     Dosage: 30 [MG/D ]
     Route: 064
     Dates: start: 20130226, end: 20130628

REACTIONS (5)
  - Small for dates baby [Recovering/Resolving]
  - Hypospadias [Not Recovered/Not Resolved]
  - Atrial septal defect [Unknown]
  - Feeding disorder neonatal [Recovered/Resolved]
  - Neonatal respiratory distress syndrome [Recovered/Resolved]

NARRATIVE: CASE EVENT DATE: 20130628
